FAERS Safety Report 8342926-2 (Version None)
Quarter: 2012Q2

REPORT INFORMATION
  Report Type: 
  Country: None (occurrence: None)
  Receive Date: 20120508
  Receipt Date: 20120426
  Transmission Date: 20120825
  Serious: Yes (Other)
  Sender: FDA-Public Use
  Company Number: US-JNJFOC-20120412569

PATIENT
  Sex: Male

DRUGS (2)
  1. REMICADE [Suspect]
     Indication: RHEUMATOID ARTHRITIS
     Route: 042
     Dates: end: 20120101
  2. ANTIBIOTICS NOS [Suspect]
     Indication: FOREIGN BODY
     Route: 065
     Dates: start: 20120101

REACTIONS (6)
  - DRUG INEFFECTIVE [None]
  - FOREIGN BODY [None]
  - SKIN DISCOLOURATION [None]
  - HAEMATOMA [None]
  - OEDEMA PERIPHERAL [None]
  - INFECTION [None]
